FAERS Safety Report 11089929 (Version 4)
Quarter: 2015Q3

REPORT INFORMATION
  Report Type: Spontaneous
  Country: US (occurrence: US)
  Receive Date: 20150505
  Receipt Date: 20150901
  Transmission Date: 20151125
  Serious: Yes (Other)
  Sender: FDA-Public Use
  Company Number: US-AMGEN-USASP2015042742

PATIENT
  Age: 61 Year
  Sex: Male

DRUGS (3)
  1. ENBREL [Suspect]
     Active Substance: ETANERCEPT
     Indication: PSORIATIC ARTHROPATHY
     Dosage: 50 MG, QWK
     Route: 065
     Dates: start: 2012
  2. MORPHINE [Concomitant]
     Active Substance: MORPHINE
     Dosage: 30 MG, BID
  3. HYDROCODONE [Concomitant]
     Active Substance: HYDROCODONE
     Dosage: 4 DF DAY, 10/325 MG

REACTIONS (12)
  - Shoulder operation [Unknown]
  - Joint dislocation [Unknown]
  - Nasopharyngitis [Unknown]
  - Scratch [Unknown]
  - Skin haemorrhage [Unknown]
  - Hip arthroplasty [Unknown]
  - Condition aggravated [Unknown]
  - Skin lesion [Unknown]
  - Psoriatic arthropathy [Unknown]
  - Pain [Unknown]
  - Fall [Unknown]
  - Malaise [Unknown]

NARRATIVE: CASE EVENT DATE: 20140402
